FAERS Safety Report 5224754-X (Version None)
Quarter: 2007Q1

REPORT INFORMATION
  Report Type: 
  Country: None (occurrence: None)
  Receive Date: 20070129
  Receipt Date: 20070129
  Transmission Date: 20070707
  Serious: Yes (Other)
  Sender: FDA-Public Use
  Company Number: None

PATIENT
  Age: 3 Year
  Sex: Female

DRUGS (1)
  1. LAMOTRIGINE CHEWABLE DISPERSIBLE [Suspect]
     Indication: CONVULSION PROPHYLAXIS
     Dosage: CHEW 3 TABLETS TWICE DAILY
     Dates: start: 20070106

REACTIONS (4)
  - DYSGEUSIA [None]
  - INCORRECT DOSE ADMINISTERED [None]
  - PHARMACEUTICAL PRODUCT COMPLAINT [None]
  - VOMITING [None]
